FAERS Safety Report 4574233-8 (Version None)
Quarter: 2005Q1

REPORT INFORMATION
  Report Type: 
  Country: None (occurrence: None)
  Receive Date: 20050208
  Receipt Date: 20041110
  Transmission Date: 20050727
  Serious: No
  Sender: FDA-Public Use
  Company Number: US-GLAXOSMITHKLINE-A0533442A

PATIENT
  Sex: Female

DRUGS (3)
  1. PAXIL [Suspect]
     Indication: DEPRESSION
     Dosage: 40MG PER DAY
     Route: 048
  2. XANAX [Concomitant]
  3. LORCET-HD [Concomitant]

REACTIONS (3)
  - AFFECT LABILITY [None]
  - AGGRESSION [None]
  - IMPATIENCE [None]
